FAERS Safety Report 9823224 (Version 2)
Quarter: 2014Q1

REPORT INFORMATION
  Report Type: Spontaneous
  Country: US (occurrence: US)
  Receive Date: 20140116
  Receipt Date: 20140131
  Transmission Date: 20141002
  Serious: Yes (Other)
  Sender: FDA-Public Use
  Company Number: US-GILEAD-2014-0092172

PATIENT
  Age: 59 Year
  Sex: Male
  Weight: 165.8 kg

DRUGS (8)
  1. RANEXA [Suspect]
     Indication: ANGINA PECTORIS
     Dosage: 1000 MG, UNK
     Route: 048
     Dates: start: 20130410
  2. RANEXA [Suspect]
     Indication: CHEST PAIN
  3. ASA [Concomitant]
     Indication: ANTICOAGULANT THERAPY
  4. BYSTOLIC [Concomitant]
     Indication: CORONARY ARTERY DISEASE
  5. BYSTOLIC [Concomitant]
     Indication: PALPITATIONS
  6. NEURONTIN [Concomitant]
  7. VENTOLIN                           /00139501/ [Concomitant]
  8. VERAMYST [Concomitant]

REACTIONS (2)
  - Nephrolithiasis [Unknown]
  - Nasopharyngitis [Unknown]
